FAERS Safety Report 5694422-9 (Version None)
Quarter: 2008Q2

REPORT INFORMATION
  Report Type: 
  Country: None (occurrence: None)
  Receive Date: 20080404
  Receipt Date: 20080404
  Transmission Date: 20081010
  Serious: Yes (Disabling)
  Sender: FDA-Public Use
  Company Number: None

PATIENT
  Age: 55 Year
  Sex: Female
  Weight: 152.8622 kg

DRUGS (10)
  1. HEPARIN LOCK-FLUSH [Suspect]
     Indication: INDWELLING CATHETER MANAGEMENT
     Dosage: FLUSH IV
     Route: 042
     Dates: start: 20080401, end: 20080401
  2. VANCOMYCIN [Concomitant]
  3. ALBUTEROL [Concomitant]
  4. BUPIVACAINE [Concomitant]
  5. CLINDAMYCIN HCL [Concomitant]
  6. FENTANYL [Concomitant]
  7. DEXAMETHASONE TAB [Concomitant]
  8. PREDNISONE [Concomitant]
  9. PRIMAXIN [Concomitant]
  10. SODIUM CHLORIDE [Concomitant]

REACTIONS (8)
  - BLOOD PRESSURE DIASTOLIC DECREASED [None]
  - BODY TEMPERATURE DECREASED [None]
  - COLD SWEAT [None]
  - DEPRESSED LEVEL OF CONSCIOUSNESS [None]
  - FEELING ABNORMAL [None]
  - HYPERHIDROSIS [None]
  - PROCEDURAL COMPLICATION [None]
  - SOMNOLENCE [None]
